FAERS Safety Report 5254605-9 (Version None)
Quarter: 2007Q1

REPORT INFORMATION
  Report Type: 
  Country: None (occurrence: None)
  Receive Date: 20070302
  Receipt Date: 20070220
  Transmission Date: 20070707
  Serious: Yes (Other)
  Sender: FDA-Public Use
  Company Number: ES-PFIZER INC-2007014323

PATIENT
  Age: 48 Year
  Sex: Male

DRUGS (3)
  1. LYRICA [Suspect]
     Indication: DIABETIC NEUROPATHY
     Dosage: DAILY DOSE:150MG
     Route: 048
  2. SEROXAT ^CIBA-GEIGY^ [Suspect]
  3. LEXATIN [Suspect]
     Dates: start: 20060101, end: 20070101

REACTIONS (6)
  - BALANCE DISORDER [None]
  - FALL [None]
  - JOINT INJURY [None]
  - MENINGITIS [None]
  - RIB FRACTURE [None]
  - TREATMENT NONCOMPLIANCE [None]
